FAERS Safety Report 19240993 (Version 2)
Quarter: 2024Q1

REPORT INFORMATION
  Report Type: Other
  Country: AT (occurrence: AT)
  Receive Date: 20210511
  Receipt Date: 20240126
  Transmission Date: 20240410
  Serious: Yes (Hospitalization)
  Sender: FDA-Public Use
  Company Number: AT-ROCHE-2214729

PATIENT
  Age: 40 Year
  Sex: Female
  Weight: 60 kg

DRUGS (15)
  1. KADCYLA [Suspect]
     Active Substance: ADO-TRASTUZUMAB EMTANSINE
     Indication: HER2 positive breast cancer
     Dosage: MOST RECENT DOSE PRIOR TO THE EVENT: 21/AUG/2017?MOST RECENT DOSE PRIOR TO THE EVENT: 22/MAY/2017
     Route: 042
     Dates: start: 20161114
  2. KADCYLA [Suspect]
     Active Substance: ADO-TRASTUZUMAB EMTANSINE
     Route: 042
     Dates: start: 20180305
  3. HERCEPTIN [Suspect]
     Active Substance: TRASTUZUMAB
     Indication: HER2 positive breast cancer
     Dosage: MOST RECENT DOSE ON 27/DEC/2019
     Route: 058
     Dates: start: 20180503
  4. FEMARA [Suspect]
     Active Substance: LETROZOLE
     Indication: HER2 positive breast cancer
     Dosage: MOST RECENT DOSE ADMINISTERED ON: 25/FEB/2020
     Route: 048
     Dates: start: 20180426
  5. PERJETA [Suspect]
     Active Substance: PERTUZUMAB
     Indication: HER2 positive breast cancer
     Dosage: MOST RECENT DOSE PRIOR TO THE EVENT: 22/NOV/2018
     Route: 058
     Dates: start: 20181122
  6. PERJETA [Suspect]
     Active Substance: PERTUZUMAB
     Dosage: MOST RECENT DOSE ON 27/DEC/2019
     Route: 042
     Dates: start: 201811
  7. TRENANTONE [Suspect]
     Active Substance: LEUPROLIDE ACETATE
     Indication: HER2 positive breast cancer
     Dosage: MOST RECENT DOSE ADMINISTERED ON: 25/FEB/2020
     Route: 058
     Dates: start: 201804
  8. EMEND [Concomitant]
     Active Substance: APREPITANT
     Dosage: ONGOING = CHECKED
     Dates: start: 20161115, end: 20200417
  9. ZOFRAN [Concomitant]
     Active Substance: ONDANSETRON HYDROCHLORIDE
     Dates: start: 20161115, end: 20200417
  10. MIRANAX [Concomitant]
     Dates: start: 20161115, end: 20200417
  11. DEXAMETHASONE [Concomitant]
     Active Substance: DEXAMETHASONE
     Dates: start: 20170330, end: 20200417
  12. ACETAMINOPHEN [Concomitant]
     Active Substance: ACETAMINOPHEN
     Indication: Metastases to central nervous system
     Dates: start: 20170609, end: 20200417
  13. MEFENAMIC ACID [Concomitant]
     Active Substance: MEFENAMIC ACID
     Indication: Dental fistula
     Dates: start: 20170315, end: 20200417
  14. MEFENAMIC ACID [Concomitant]
     Active Substance: MEFENAMIC ACID
     Dates: start: 20181113, end: 20181120
  15. XGEVA [Concomitant]
     Active Substance: DENOSUMAB

REACTIONS (6)
  - Spinal pain [Recovered/Resolved]
  - Chills [Recovered/Resolved]
  - Night sweats [Recovered/Resolved]
  - Vision blurred [Recovered/Resolved]
  - Dental fistula [Recovered/Resolved]
  - Spinal pain [Not Recovered/Not Resolved]

NARRATIVE: CASE EVENT DATE: 20181112
